FAERS Safety Report 8508591-6 (Version None)
Quarter: 2012Q3

REPORT INFORMATION
  Report Type: 
  Country: None (occurrence: None)
  Receive Date: 20120713
  Receipt Date: 20120710
  Transmission Date: 20120928
  Serious: Yes (Other)
  Sender: FDA-Public Use
  Company Number: US-PFIZER INC-2012165598

PATIENT
  Sex: Male
  Weight: 86.168 kg

DRUGS (3)
  1. CHANTIX [Suspect]
     Indication: SMOKING CESSATION THERAPY
     Dosage: UNK
  2. CHANTIX [Suspect]
     Dosage: 0.5 MG, DAILY
     Dates: start: 20120701
  3. CHANTIX [Suspect]
     Dosage: 0.5 MG, UNK
     Dates: end: 20120710

REACTIONS (5)
  - INSOMNIA [None]
  - RESTLESSNESS [None]
  - FEELING ABNORMAL [None]
  - PARANOIA [None]
  - ANXIETY [None]
